FAERS Safety Report 17843307 (Version 1)
Quarter: 2020Q2

REPORT INFORMATION
  Report Type: Spontaneous
  Country: ES (occurrence: ES)
  Receive Date: 20200530
  Receipt Date: 20200530
  Transmission Date: 20200714
  Serious: Yes (Other)
  Sender: FDA-Public Use
  Company Number: ES-ACCORD-183550

PATIENT
  Age: 39 Year
  Sex: Female

DRUGS (8)
  1. RITUXIMAB. [Interacting]
     Active Substance: RITUXIMAB
     Indication: MIXED CONNECTIVE TISSUE DISEASE
     Dosage: PERFUSION
     Route: 065
  2. MACITENTAN [Suspect]
     Active Substance: MACITENTAN
     Indication: SKIN ULCER
     Route: 065
  3. TACROLIMUS. [Interacting]
     Active Substance: TACROLIMUS
     Indication: MIXED CONNECTIVE TISSUE DISEASE
     Dosage: 2.5 TO 3.0 MG PER DAY IN TWO DIVIDED DOSES
     Route: 065
  4. MYCOPHENOLIC ACID. [Suspect]
     Active Substance: MYCOPHENOLIC ACID
     Indication: MIXED CONNECTIVE TISSUE DISEASE
     Route: 065
  5. BOSENTAN. [Interacting]
     Active Substance: BOSENTAN
     Indication: SKIN ULCER
     Route: 048
  6. AZATHIOPRINE. [Interacting]
     Active Substance: AZATHIOPRINE
     Indication: MIXED CONNECTIVE TISSUE DISEASE
     Route: 065
  7. ALPROSTADIL/ALPROSTADIL ALFADEX [Concomitant]
     Indication: RAYNAUD^S PHENOMENON
     Route: 065
  8. CYCLOPHOSPHAMIDE/CYCLOPHOSPHAMIDE MONOHYDRATE [Concomitant]
     Active Substance: CYCLOPHOSPHAMIDE
     Dosage: ROUTE:BOLUS
     Route: 050

REACTIONS (4)
  - Haematotoxicity [Unknown]
  - Enterocolitis [Unknown]
  - Drug interaction [Unknown]
  - Hypersensitivity [Unknown]
